FAERS Safety Report 8925308 (Version 2)
Quarter: 2012Q4

REPORT INFORMATION
  Report Type: Report from Study
  Country: FR (occurrence: FR)
  Receive Date: 20121126
  Receipt Date: 20121128
  Transmission Date: 20130627
  Serious: Yes (Hospitalization, Other)
  Sender: FDA-Public Use
  Company Number: FR-ROCHE-1022115

PATIENT
  Age: 59 Year
  Sex: Male
  Weight: 98 kg

DRUGS (4)
  1. RITUXIMAB [Suspect]
     Indication: MALIGNANT LYMPHOID NEOPLASM
     Dosage: Last dose prior to SAE: 30/Sep/2011
     Route: 042
     Dates: start: 20110830
  2. METHOTREXATE [Suspect]
     Indication: MALIGNANT LYMPHOID NEOPLASM
     Dosage: Last dose prior to SAE: 30/Sep/2011
     Route: 042
     Dates: start: 20110830
  3. ETOPOSIDE [Suspect]
     Indication: MALIGNANT LYMPHOID NEOPLASM
     Dosage: Last dose prior to SAE: 01/Oct/2011
     Route: 042
     Dates: start: 20110831
  4. CARMUSTINE [Suspect]
     Indication: MALIGNANT LYMPHOID NEOPLASM
     Route: 042
     Dates: start: 20110901, end: 20111003

REACTIONS (1)
  - Sepsis [Recovered/Resolved]
